FAERS Safety Report 4587120-6 (Version None)
Quarter: 2005Q1

REPORT INFORMATION
  Report Type: 
  Country: None (occurrence: None)
  Receive Date: 20050215
  Receipt Date: 20050207
  Transmission Date: 20050727
  Serious: Yes (Hospitalization, Other)
  Sender: FDA-Public Use
  Company Number: 2002-09-0326

PATIENT
  Age: 77 Year
  Sex: Male
  Weight: 74.8435 kg

DRUGS (11)
  1. THALOMID [Suspect]
     Indication: MYELODYSPLASTIC SYNDROME
     Dosage: 100 MG, QHS, ORAL
     Route: 048
     Dates: start: 20020916
  2. ARSENIC TRIOXIDE (ARSENIC TRIOXIDE) [Suspect]
     Indication: MYELODYSPLASTIC SYNDROME
     Dosage: 0.25 MG/KG, 5 DAYS A WK, 2WKS.OFF, INTRAVENOUS
     Route: 042
     Dates: start: 20020903, end: 20020904
  3. NIFEDIPINE [Concomitant]
  4. TERAZOSIN (TERAZOSIN) [Concomitant]
  5. ACETYLSALICYLIC ACID SRT [Concomitant]
  6. IBUPROFEN [Concomitant]
  7. FOLIC ACID [Concomitant]
  8. VITAMIN B16 (PYRIDOXINE HYDROCHLORIDE) [Concomitant]
  9. SENOKOT [Concomitant]
  10. VITAMIN C (ASCORBIC ACID) [Concomitant]
  11. PYRIDOXINE (PYRIDOXINE) [Concomitant]

REACTIONS (3)
  - COLITIS ISCHAEMIC [None]
  - DIVERTICULUM [None]
  - GASTROINTESTINAL HAEMORRHAGE [None]
